FAERS Safety Report 13677811 (Version 2)
Quarter: 2017Q3

REPORT INFORMATION
  Report Type: Spontaneous
  Country: US (occurrence: US)
  Receive Date: 20170622
  Receipt Date: 20170726
  Transmission Date: 20171127
  Serious: No
  Sender: FDA-Public Use
  Company Number: US-GLAXOSMITHKLINE-US2017095643

PATIENT
  Sex: Male

DRUGS (3)
  1. TANZEUM [Suspect]
     Active Substance: ALBIGLUTIDE
     Indication: GLYCOSYLATED HAEMOGLOBIN INCREASED
  2. LEVEMIR [Concomitant]
     Active Substance: INSULIN DETEMIR
  3. TANZEUM [Suspect]
     Active Substance: ALBIGLUTIDE
     Indication: DIABETES MELLITUS
     Dosage: 30 MG, WE
     Route: 042
     Dates: start: 201610

REACTIONS (4)
  - Drug dose omission [Unknown]
  - Visual impairment [Not Recovered/Not Resolved]
  - Product use in unapproved indication [Unknown]
  - Product quality issue [Unknown]
